FAERS Safety Report 11025984 (Version 1)
Quarter: 2015Q2

REPORT INFORMATION
  Report Type: Spontaneous
  Country: US (occurrence: None)
  Receive Date: 20150413
  Receipt Date: 20150413
  Transmission Date: 20150821
  Serious: Yes (Hospitalization)
  Sender: FDA-Public Use
  Company Number: None

PATIENT
  Age: 73 Year
  Sex: Female
  Weight: 54.2 kg

DRUGS (2)
  1. TRICIRIBINE PHOSPHATE [Suspect]
     Active Substance: TRICIRIBINE PHOSPHATE
     Indication: OVARIAN CANCER
     Dosage: 15 MG/M^^2, ONCE WEEKLY, IV
     Route: 042
     Dates: start: 20141124, end: 20141230
  2. CARBOPLATIN. [Suspect]
     Active Substance: CARBOPLATIN
     Indication: OVARIAN CANCER
     Dosage: AUC5, Q21DAYS
     Route: 042
     Dates: start: 20141124, end: 20141230

REACTIONS (6)
  - Disease progression [None]
  - Nausea [None]
  - Arthralgia [None]
  - Constipation [None]
  - Metastases to bone [None]
  - Vomiting [None]

NARRATIVE: CASE EVENT DATE: 20141229
